FAERS Safety Report 9925924 (Version 3)
Quarter: 2015Q3

REPORT INFORMATION
  Report Type: Spontaneous
  Country: JP (occurrence: JP)
  Receive Date: 20140226
  Receipt Date: 20150821
  Transmission Date: 20151125
  Serious: Yes (Hospitalization, Other)
  Sender: FDA-Public Use
  Company Number: JP-SA-2014SA018200

PATIENT
  Age: 72 Year
  Sex: Female
  Weight: 62 kg

DRUGS (17)
  1. 5-FU [Suspect]
     Active Substance: FLUOROURACIL
     Indication: PANCREATIC CARCINOMA
     Dosage: CONTINOUS INFUSION
     Route: 041
     Dates: start: 20140204, end: 20140204
  2. DECADRON [Concomitant]
     Active Substance: DEXAMETHASONE
     Dates: start: 20140204, end: 20140204
  3. ELPLAT [Suspect]
     Active Substance: OXALIPLATIN
     Indication: PANCREATIC CARCINOMA
     Dosage: INJECTION
     Route: 041
     Dates: start: 20140204, end: 20140204
  4. AZELNIDIPINE [Concomitant]
     Active Substance: AZELNIDIPINE
     Dates: start: 20140131
  5. AMINO ACIDS NOS [Concomitant]
     Dates: start: 20140206, end: 20140206
  6. ALOXI [Concomitant]
     Active Substance: PALONOSETRON HYDROCHLORIDE
     Dates: start: 20140204, end: 20140204
  7. GOODMIN [Concomitant]
     Active Substance: BROTIZOLAM
     Dates: start: 20140131
  8. BLOPRESS [Concomitant]
     Active Substance: CANDESARTAN CILEXETIL
     Dates: start: 20140131
  9. LOXONIN [Concomitant]
     Active Substance: LOXOPROFEN SODIUM
     Dates: start: 20140131
  10. NEXIUM [Concomitant]
     Active Substance: ESOMEPRAZOLE MAGNESIUM
     Dates: start: 20140131
  11. SOLITA-T3 INJECTION [Concomitant]
     Dates: start: 20140206
  12. MAGLAX [Concomitant]
     Active Substance: MAGNESIUM OXIDE
     Dates: start: 20140131
  13. DECADRON [Concomitant]
     Active Substance: DEXAMETHASONE
     Dates: start: 20140205, end: 20140206
  14. ZETIA [Concomitant]
     Active Substance: EZETIMIBE
     Dates: start: 20140131
  15. TRYPTANOL [Concomitant]
     Active Substance: AMITRIPTYLINE
     Dates: start: 20140131
  16. CALCIUM LEVOFOLINATE [Suspect]
     Active Substance: LEVOLEUCOVORIN CALCIUM
     Indication: PANCREATIC CARCINOMA
     Dosage: INJECTION
     Route: 041
     Dates: start: 20140204, end: 20140204
  17. CAMPTO [Suspect]
     Active Substance: IRINOTECAN
     Indication: PANCREATIC CARCINOMA
     Dosage: INJECTION
     Route: 041
     Dates: start: 20140204, end: 20140204

REACTIONS (3)
  - Vomiting [Unknown]
  - Altered state of consciousness [Recovering/Resolving]
  - Hyperammonaemia [Recovered/Resolved]

NARRATIVE: CASE EVENT DATE: 20140206
